FAERS Safety Report 17324431 (Version 1)
Quarter: 2020Q1

REPORT INFORMATION
  Report Type: Spontaneous
  Country: US (occurrence: US)
  Receive Date: 20200124
  Receipt Date: 20200124
  Transmission Date: 20200409
  Serious: Yes (Disabling)
  Sender: FDA-Public Use
  Company Number: None

PATIENT
  Age: 68 Year
  Sex: Female
  Weight: 54 kg

DRUGS (6)
  1. TIZANADINE [Concomitant]
     Active Substance: TIZANIDINE
  2. NARATRIPTAN [Concomitant]
     Active Substance: NARATRIPTAN HYDROCHLORIDE
  3. AIMOVIG [Suspect]
     Active Substance: ERENUMAB-AOOE
     Indication: MIGRAINE
     Dosage: ?          QUANTITY:2 INJECTION(S);OTHER FREQUENCY:ONCE MONTHLY;?
     Route: 030
  4. VITAMIN D [Concomitant]
     Active Substance: VITAMIN D NOS
  5. KLONOPIN [Concomitant]
     Active Substance: CLONAZEPAM
  6. BIOTIN [Concomitant]
     Active Substance: BIOTIN

REACTIONS (8)
  - Constipation [None]
  - Insomnia [None]
  - Anxiety [None]
  - Chronic kidney disease [None]
  - Onychomadesis [None]
  - Chronic lymphocytic leukaemia [None]
  - Alopecia [None]
  - Lupus-like syndrome [None]

NARRATIVE: CASE EVENT DATE: 20191024
